FAERS Safety Report 10199088 (Version 1)
Quarter: 2014Q2

REPORT INFORMATION
  Report Type: Spontaneous
  Country: US (occurrence: US)
  Receive Date: 20140527
  Receipt Date: 20140527
  Transmission Date: 20141212
  Serious: No
  Sender: FDA-Public Use
  Company Number: US-TEVA-484601USA

PATIENT
  Age: 30 Year
  Sex: Female
  Weight: 63.56 kg

DRUGS (2)
  1. PLAN B ONE-STEP [Suspect]
     Indication: POST COITAL CONTRACEPTION
     Dosage: 1.5 MILLIGRAM DAILY;
     Route: 048
     Dates: start: 20140511, end: 20140511
  2. SYNTHROID [Concomitant]
     Indication: AUTOIMMUNE THYROIDITIS

REACTIONS (5)
  - Breast enlargement [Not Recovered/Not Resolved]
  - Irritability [Not Recovered/Not Resolved]
  - Vomiting [Recovered/Resolved]
  - Menstruation irregular [Not Recovered/Not Resolved]
  - Nausea [Recovered/Resolved]
